FAERS Safety Report 8901059 (Version 2)
Quarter: 2012Q4

REPORT INFORMATION
  Report Type: 
  Country: AU (occurrence: AU)
  Receive Date: 20121109
  Receipt Date: 20121206
  Transmission Date: 20130627
  Serious: Yes (Other)
  Sender: FDA-Public Use
  Company Number: AU-ROCHE-1153770

PATIENT

DRUGS (5)
  1. RITUXIMAB [Suspect]
     Indication: MANTLE CELL LYMPHOMA
     Route: 065
  2. CARMUSTINE [Suspect]
     Indication: MANTLE CELL LYMPHOMA
     Dosage: on day - 6
     Route: 065
  3. MELPHALAN [Suspect]
     Indication: MANTLE CELL LYMPHOMA
     Dosage: on day - 1
     Route: 065
  4. CYTARABINE [Suspect]
     Indication: MANTLE CELL LYMPHOMA
     Dosage: twice daily from days - 5 to - 2
     Route: 065
  5. ETOPOSIDE [Suspect]
     Indication: MANTLE CELL LYMPHOMA
     Dosage: daily from days - 5 to - 2
     Route: 065

REACTIONS (1)
  - Mucosal inflammation [Unknown]
